FAERS Safety Report 18181455 (Version 1)
Quarter: 2020Q3

REPORT INFORMATION
  Report Type: Spontaneous
  Country: US (occurrence: US)
  Receive Date: 20200821
  Receipt Date: 20200821
  Transmission Date: 20201103
  Serious: Yes (Other)
  Sender: FDA-Public Use
  Company Number: US-ELI_LILLY_AND_COMPANY-US202008004443

PATIENT
  Sex: Male

DRUGS (2)
  1. HUMALOG [Suspect]
     Active Substance: INSULIN LISPRO
     Indication: PRODUCT USED FOR UNKNOWN INDICATION
     Dosage: UNK UNK, UNKNOWN
     Route: 065
  2. HUMALOG [Suspect]
     Active Substance: INSULIN LISPRO
     Dosage: UNK UNK, UNKNOWN
     Route: 065

REACTIONS (8)
  - Periarthritis [Unknown]
  - Insulin resistance [Unknown]
  - Blood glucose increased [Unknown]
  - Neck injury [Unknown]
  - Neuropathy peripheral [Unknown]
  - Weight increased [Unknown]
  - Drug ineffective [Unknown]
  - Bone loss [Unknown]

NARRATIVE: CASE EVENT DATE: 2008
